FAERS Safety Report 22117616 (Version 1)
Quarter: 2023Q1

REPORT INFORMATION
  Report Type: Spontaneous
  Country: AU (occurrence: None)
  Receive Date: 20230321
  Receipt Date: 20230321
  Transmission Date: 20230418
  Serious: Yes (Other)
  Sender: FDA-Public Use
  Company Number: 2023A062663

PATIENT
  Age: 40 Year
  Sex: Male

DRUGS (6)
  1. FULVESTRANT [Suspect]
     Active Substance: FULVESTRANT
     Route: 030
  2. GOSERELIN ACETATE [Suspect]
     Active Substance: GOSERELIN ACETATE
     Route: 058
  3. RIBOCICLIB [Suspect]
     Active Substance: RIBOCICLIB
     Route: 048
  4. DENOSUMAB [Suspect]
     Active Substance: DENOSUMAB
  5. PACLITAXEL [Suspect]
     Active Substance: PACLITAXEL
  6. ZOMETA [Suspect]
     Active Substance: ZOLEDRONIC ACID

REACTIONS (7)
  - Metastases to bone [Unknown]
  - Anaemia [Unknown]
  - Back pain [Unknown]
  - Blood calcium increased [Unknown]
  - Decreased appetite [Unknown]
  - Hepatic enzyme increased [Unknown]
  - Neutropenia [Unknown]
